FAERS Safety Report 8771219 (Version 1)
Quarter: 2012Q4

REPORT INFORMATION
  Report Type: 
  Country: FR (occurrence: FR)
  Receive Date: 20120905
  Receipt Date: 20120905
  Transmission Date: 20130627
  Serious: Yes (Death)
  Sender: FDA-Public Use
  Company Number: FR-BAXTER-2012BAX002573

PATIENT
  Age: 53 Year
  Sex: Male
  Weight: 83 kg

DRUGS (7)
  1. ENDOXAN 1000 MG, POUDRE POUR SOLUTION INJECTABLE [Suspect]
     Indication: CHEMOTHERAPY
     Route: 042
     Dates: start: 20120203, end: 20120204
  2. SANDIMMUN [Suspect]
     Indication: DRUG USE FOR UNKNOWN INDICATION
     Route: 042
     Dates: start: 20120208, end: 20120217
  3. SANDIMMUN [Suspect]
     Route: 042
     Dates: start: 20120217, end: 20120221
  4. METHOTREXATE [Suspect]
     Indication: DRUG USE FOR UNKNOWN INDICATION
     Route: 042
     Dates: start: 20120210, end: 20120210
  5. METHOTREXATE [Suspect]
     Route: 042
     Dates: start: 20120212, end: 20120212
  6. UROMITEXAN [Concomitant]
     Indication: DRUG USE FOR UNKNOWN INDICATION
     Route: 042
     Dates: start: 20120203, end: 20120205
  7. PROGRAF [Concomitant]
     Indication: DRUG USE FOR UNKNOWN INDICATION
     Route: 048
     Dates: start: 20120221, end: 20120222

REACTIONS (2)
  - Venoocclusive liver disease [Fatal]
  - Hepatorenal syndrome [Fatal]
